FAERS Safety Report 6904970-9 (Version None)
Quarter: 2010Q3

REPORT INFORMATION
  Report Type: 
  Country: None (occurrence: None)
  Receive Date: 20100804
  Receipt Date: 20090814
  Transmission Date: 20110219
  Serious: No
  Sender: FDA-Public Use
  Company Number: US-PFIZER INC-2009203250

PATIENT
  Sex: Female
  Weight: 73.016 kg

DRUGS (3)
  1. LYRICA [Suspect]
     Indication: BACK PAIN
     Dosage: 50 MG, 3X/DAY
     Dates: start: 20081209, end: 20090409
  2. LYRICA [Suspect]
     Indication: LUMBAR RADICULOPATHY
  3. TOPAMAX [Concomitant]
     Dosage: UNK

REACTIONS (3)
  - BLOOD COUNT ABNORMAL [None]
  - MALAISE [None]
  - PLATELET COUNT DECREASED [None]
